FAERS Safety Report 9649412 (Version 2)
Quarter: 2013Q4

REPORT INFORMATION
  Report Type: Spontaneous
  Country: JP (occurrence: JP)
  Receive Date: 20131028
  Receipt Date: 20131028
  Transmission Date: 20140711
  Serious: Yes (Other)
  Sender: FDA-Public Use
  Company Number: PHHY2013JP086472

PATIENT
  Age: 85 Year
  Sex: Female

DRUGS (16)
  1. SYMMETREL [Suspect]
     Indication: PARKINSON^S DISEASE
     Dosage: 100 MG, DAILY
     Route: 048
     Dates: end: 20130804
  2. SYMMETREL [Suspect]
     Dosage: 100 MG, DAILY
     Dates: start: 20130809
  3. PRAVASTATIN SODIUM [Suspect]
     Dosage: UNK UKN, UNK
     Route: 048
     Dates: end: 20130804
  4. PRAVASTATIN SODIUM [Suspect]
     Dosage: UNK UKN, UNK
     Route: 048
     Dates: start: 20130809
  5. MAGNESIUM SULFATE [Suspect]
     Dosage: UNK UKN, UNK
     Route: 048
     Dates: end: 20130804
  6. MAGNESIUM SULFATE [Suspect]
     Dosage: UNK UKN, UNK
     Route: 048
     Dates: start: 20130809
  7. ALFAROL [Suspect]
     Dosage: UNK UKN, UNK
     Route: 048
     Dates: end: 20130804
  8. ALFAROL [Suspect]
     Dosage: UNK UKN, UNK
     Route: 048
     Dates: start: 20130809
  9. VESICARE [Suspect]
     Dosage: UNK UKN, UNK
     Route: 048
     Dates: end: 20130804
  10. VESICARE [Suspect]
     Dosage: UNK UKN, UNK
     Route: 048
     Dates: start: 20130809
  11. PARIET [Suspect]
     Dosage: UNK UKN, UNK
     Route: 048
     Dates: end: 20130804
  12. PARIET [Suspect]
     Dosage: UNK UKN, UNK
     Route: 048
     Dates: start: 20130809
  13. DEPAS [Suspect]
     Dosage: UNK UKN, UNK
     Route: 048
     Dates: end: 20130804
  14. DEPAS [Suspect]
     Dosage: UNK UKN, UNK
     Route: 048
     Dates: start: 20130809
  15. ALOSENN [Suspect]
     Dosage: UNK UKN, UNK
     Route: 048
     Dates: end: 20130804
  16. ALOSENN [Suspect]
     Dosage: UNK UKN, UNK
     Route: 048
     Dates: start: 20130809

REACTIONS (6)
  - Volvulus [Unknown]
  - Atrial fibrillation [Recovered/Resolved]
  - Heart rate increased [Recovered/Resolved]
  - Respiration abnormal [Unknown]
  - Dehydration [Unknown]
  - Arrhythmia [Unknown]
